FAERS Safety Report 5342311-1 (Version None)
Quarter: 2007Q2

REPORT INFORMATION
  Report Type: 
  Country: None (occurrence: None)
  Receive Date: 20070601
  Receipt Date: 20070501
  Transmission Date: 20071010
  Serious: No
  Sender: FDA-Public Use
  Company Number: A0649228A

PATIENT
  Age: 32 Year
  Sex: Female

DRUGS (1)
  1. ALLI [Suspect]
     Dates: start: 20070421

REACTIONS (1)
  - NAUSEA [None]
